FAERS Safety Report 14075703 (Version 1)
Quarter: 2017Q4

REPORT INFORMATION
  Report Type: Spontaneous
  Country: US (occurrence: US)
  Receive Date: 20171011
  Receipt Date: 20171011
  Transmission Date: 20180321
  Serious: Yes (Other)
  Sender: FDA-Public Use
  Company Number: US-FRESENIUS KABI-FK201708332

PATIENT
  Age: 57 Year
  Sex: Female

DRUGS (4)
  1. LINEZOLID (MANUFACTURER UNKNOWN) [Suspect]
     Active Substance: LINEZOLID
     Indication: URINARY TRACT INFECTION
  2. TRAMADOL. [Suspect]
     Active Substance: TRAMADOL
     Indication: PAIN
  3. CITALOPRAM [Suspect]
     Active Substance: CITALOPRAM HYDROBROMIDE
     Indication: DEPRESSION
  4. FLUCONAZOLE. [Suspect]
     Active Substance: FLUCONAZOLE
     Indication: URINARY TRACT INFECTION

REACTIONS (13)
  - Speech disorder [Recovered/Resolved]
  - Serotonin syndrome [Recovered/Resolved]
  - Muscle rigidity [Recovered/Resolved]
  - Respiratory failure [Recovered/Resolved]
  - Drug interaction [Recovered/Resolved]
  - Anxiety [Recovered/Resolved]
  - Hyperreflexia [Recovered/Resolved]
  - Hypertension [Recovered/Resolved]
  - Hypoxia [Recovered/Resolved]
  - Tremor [Recovered/Resolved]
  - Aphasia [Recovered/Resolved]
  - Dyspnoea [Recovered/Resolved]
  - Incontinence [Recovered/Resolved]
